FAERS Safety Report 6176107-8 (Version None)
Quarter: 2009Q2

REPORT INFORMATION
  Report Type: 
  Country: None (occurrence: None)
  Receive Date: 20090501
  Receipt Date: 20090420
  Transmission Date: 20091009
  Serious: Yes (Other)
  Sender: FDA-Public Use
  Company Number: JP-PFIZER INC-2009168547

PATIENT

DRUGS (5)
  1. ZOLOFT [Suspect]
     Indication: DEPRESSIVE SYMPTOM
     Dosage: 50 MG, 1X/DAY
     Route: 048
     Dates: start: 20090105, end: 20090112
  2. ZOLOFT [Suspect]
     Indication: OBSESSIVE-COMPULSIVE DISORDER
  3. DEPAKENE [Concomitant]
     Dosage: UNK
     Route: 048
     Dates: start: 20081001, end: 20090101
  4. SEROQUEL [Concomitant]
     Dosage: UNK
     Route: 048
     Dates: start: 20081201, end: 20090101
  5. DEPAS [Concomitant]
     Dosage: UNK
     Route: 048

REACTIONS (14)
  - ANOREXIA [None]
  - BUCCAL MUCOSAL ROUGHENING [None]
  - DEPRESSION [None]
  - DIARRHOEA [None]
  - DRY MOUTH [None]
  - HAEMOPTYSIS [None]
  - MUSCULOSKELETAL STIFFNESS [None]
  - NAUSEA [None]
  - OBSESSIVE-COMPULSIVE DISORDER [None]
  - OROPHARYNGEAL PAIN [None]
  - PHARYNGEAL ERYTHEMA [None]
  - STOMATITIS [None]
  - SWOLLEN TONGUE [None]
  - WEIGHT DECREASED [None]
